FAERS Safety Report 8758507 (Version 1)
Quarter: 2012Q4

REPORT INFORMATION
  Report Type: 
  Country: CN (occurrence: CN)
  Receive Date: 20120829
  Receipt Date: 20120829
  Transmission Date: 20130627
  Serious: Yes (Hospitalization)
  Sender: FDA-Public Use
  Company Number: CN-ABBOTT-12P-035-0973618-00

PATIENT
  Age: 20 Year
  Sex: Male

DRUGS (1)
  1. DEPAKINE [Suspect]
     Indication: BRAIN INJURY
     Route: 048
     Dates: start: 20100113, end: 20100208

REACTIONS (7)
  - Erythema [Unknown]
  - Rash [Unknown]
  - Pruritus [Unknown]
  - Skin exfoliation [Unknown]
  - Pyrexia [Unknown]
  - Dizziness [Unknown]
  - Irritability [Unknown]
